FAERS Safety Report 6325869-5 (Version None)
Quarter: 2009Q3

REPORT INFORMATION
  Report Type: 
  Country: None (occurrence: None)
  Receive Date: 20090824
  Receipt Date: 20090811
  Transmission Date: 20100115
  Serious: Yes (Hospitalization, Other)
  Sender: FDA-Public Use
  Company Number: US-MERCK-0806USA08536

PATIENT
  Age: 72 Year
  Sex: Female

DRUGS (2)
  1. FOSAMAX [Suspect]
     Indication: OSTEOPENIA
     Route: 048
     Dates: start: 19960401
  2. FOSAMAX [Suspect]
     Route: 048
     Dates: end: 20051101

REACTIONS (16)
  - ABSCESS [None]
  - BLOOD CHOLESTEROL INCREASED [None]
  - DEHYDRATION [None]
  - DENTAL CARIES [None]
  - DIVERTICULITIS [None]
  - GINGIVAL DISORDER [None]
  - HYPOTHYROIDISM [None]
  - IMPAIRED HEALING [None]
  - INFLUENZA [None]
  - ORAL INFECTION [None]
  - OSTEOMYELITIS [None]
  - OSTEONECROSIS [None]
  - PAIN IN JAW [None]
  - SEASONAL ALLERGY [None]
  - TOOTHACHE [None]
  - URINARY TRACT INFECTION [None]
